FAERS Safety Report 8108639-7 (Version None)
Quarter: 2012Q1

REPORT INFORMATION
  Report Type: 
  Country: None (occurrence: None)
  Receive Date: 20120202
  Receipt Date: 20120125
  Transmission Date: 20120608
  Serious: Yes (Hospitalization)
  Sender: FDA-Public Use
  Company Number: NL-ABBOTT-12P-114-0898412-00

PATIENT

DRUGS (2)
  1. TOCILIZUMAB [Suspect]
     Indication: PRODUCT USED FOR UNKNOWN INDICATION
     Route: 058
  2. HUMIRA [Suspect]
     Indication: PRODUCT USED FOR UNKNOWN INDICATION

REACTIONS (5)
  - TYPE III IMMUNE COMPLEX MEDIATED REACTION [None]
  - CROSS SENSITIVITY REACTION [None]
  - VASCULITIS [None]
  - DRUG SPECIFIC ANTIBODY PRESENT [None]
  - BLOOD DISORDER [None]
